FAERS Safety Report 9399164 (Version 1)
Quarter: 2013Q3

REPORT INFORMATION
  Report Type: Spontaneous
  Country: US (occurrence: US)
  Receive Date: 20130715
  Receipt Date: 20130715
  Transmission Date: 20140515
  Serious: Yes (Hospitalization, Other)
  Sender: FDA-Public Use
  Company Number: US-SUN PHARMACEUTICAL INDUSTRIES LTD-2013SUN01012

PATIENT
  Age: 47 Year
  Sex: Female

DRUGS (1)
  1. CLOZAPINE 25 MG TABLETS [Suspect]
     Indication: SCHIZOPHRENIA
     Route: 065

REACTIONS (2)
  - Hyperlipidaemia [Recovering/Resolving]
  - Type 2 diabetes mellitus [Recovering/Resolving]
